FAERS Safety Report 7021002-5 (Version None)
Quarter: 2010Q3

REPORT INFORMATION
  Report Type: 
  Country: None (occurrence: None)
  Receive Date: 20100929
  Receipt Date: 20100921
  Transmission Date: 20110219
  Serious: Yes (Other)
  Sender: FDA-Public Use
  Company Number: US-PFIZER INC-2010120236

PATIENT
  Sex: Male
  Weight: 163.27 kg

DRUGS (1)
  1. DEPO-TESTOSTERONE [Suspect]
     Dosage: UNK

REACTIONS (6)
  - CHEST PAIN [None]
  - DIZZINESS [None]
  - HEADACHE [None]
  - PAINFUL RESPIRATION [None]
  - PSYCHOSOMATIC DISEASE [None]
  - PYREXIA [None]
